FAERS Safety Report 4456213-6 (Version None)
Quarter: 2004Q3

REPORT INFORMATION
  Report Type: 
  Country: None (occurrence: None)
  Receive Date: 20040902
  Receipt Date: 20040623
  Transmission Date: 20050211
  Serious: No
  Sender: FDA-Public Use
  Company Number: 200328613BWH

PATIENT
  Age: 67 Year
  Sex: Male

DRUGS (2)
  1. LEVITRA [Suspect]
     Indication: ERECTILE DYSFUNCTION
     Dosage: 10 MG, TOTAL DAILY, ORAL
     Route: 048
     Dates: start: 20031117
  2. VIAGRA [Concomitant]

REACTIONS (3)
  - CONSTIPATION [None]
  - ERYTHEMA [None]
  - FLUSHING [None]
